FAERS Safety Report 8725533 (Version 2)
Quarter: 2013Q3

REPORT INFORMATION
  Report Type: Spontaneous
  Country: US (occurrence: US)
  Receive Date: 20120815
  Receipt Date: 20130708
  Transmission Date: 20140515
  Serious: No
  Sender: FDA-Public Use
  Company Number: US-ASTRAZENECA-2012SE24661

PATIENT
  Age: 47 Year
  Sex: Female

DRUGS (6)
  1. NEXIUM [Suspect]
     Route: 048
  2. SEROQUEL XR [Suspect]
     Indication: SLEEP DISORDER
     Route: 048
  3. ZOMIG ZMT [Suspect]
     Indication: MIGRAINE
     Route: 048
  4. ZOMIG ZMT [Suspect]
     Indication: MIGRAINE
     Route: 048
  5. ZOMIG ZMT [Suspect]
     Indication: MIGRAINE
     Route: 048
  6. AMBIEN [Concomitant]
     Route: 065

REACTIONS (10)
  - Contusion [Unknown]
  - Fall [Unknown]
  - Post-traumatic stress disorder [Unknown]
  - Migraine [Unknown]
  - Hypoaesthesia [Unknown]
  - Malaise [Unknown]
  - Insomnia [Unknown]
  - Headache [Unknown]
  - Vomiting [Unknown]
  - Drug dose omission [Unknown]
